FAERS Safety Report 22157209 (Version 1)
Quarter: 2023Q1

REPORT INFORMATION
  Report Type: Spontaneous
  Country: US (occurrence: None)
  Receive Date: 20230329
  Receipt Date: 20230329
  Transmission Date: 20230417
  Serious: Yes (Hospitalization)
  Sender: FDA-Public Use
  Company Number: None

PATIENT
  Sex: Female

DRUGS (2)
  1. TADALAFIL [Suspect]
     Active Substance: TADALAFIL
  2. ORENITRAM [Concomitant]
     Dosage: FREQUENCY : DAILY;?
     Route: 048
     Dates: start: 20220928

REACTIONS (6)
  - Therapy interrupted [None]
  - Nausea [None]
  - Anxiety [None]
  - Cold sweat [None]
  - Hyperhidrosis [None]
  - Fear [None]
